FAERS Safety Report 9338103 (Version 3)
Quarter: 2013Q3

REPORT INFORMATION
  Report Type: Report from Study
  Country: US (occurrence: US)
  Receive Date: 20130610
  Receipt Date: 20130808
  Transmission Date: 20140515
  Serious: Yes (Other)
  Sender: FDA-Public Use
  Company Number: US-ROCHE-1231983

PATIENT
  Age: 78 Year
  Sex: Female
  Weight: 50.39 kg

DRUGS (4)
  1. LUCENTIS [Suspect]
     Indication: AGE-RELATED MACULAR DEGENERATION
     Route: 050
     Dates: start: 20090629
  2. SYMBICORT [Concomitant]
     Indication: CHRONIC OBSTRUCTIVE PULMONARY DISEASE
     Dosage: 2 PUFFS TWICE A DAY
     Route: 055
     Dates: start: 2010
  3. XANAX [Concomitant]
     Indication: ANXIETY
     Route: 048
     Dates: start: 2006
  4. ADVAIR [Concomitant]
     Indication: CHRONIC OBSTRUCTIVE PULMONARY DISEASE
     Dosage: 1 PUFF TWICE A DAY
     Route: 055
     Dates: end: 2010

REACTIONS (14)
  - Cerebrovascular accident [Recovered/Resolved]
  - Haemorrhage [Unknown]
  - Laryngitis [Not Recovered/Not Resolved]
  - Pharyngeal disorder [Not Recovered/Not Resolved]
  - Dizziness [Unknown]
  - Balance disorder [Unknown]
  - Fatigue [Unknown]
  - Fatigue [Unknown]
  - Musculoskeletal stiffness [Unknown]
  - Headache [Unknown]
  - Eye disorder [Unknown]
  - Nasopharyngitis [Unknown]
  - Burning sensation [Unknown]
  - Mastication disorder [Unknown]
